FAERS Safety Report 9431999 (Version 1)
Quarter: 2013Q3

REPORT INFORMATION
  Report Type: Report from Study
  Country: CA (occurrence: CA)
  Receive Date: 20130731
  Receipt Date: 20130731
  Transmission Date: 20140515
  Serious: Yes (Other)
  Sender: FDA-Public Use
  Company Number: CA-JNJFOC-20130715056

PATIENT
  Age: 62 Year
  Sex: Female
  Weight: 99 kg

DRUGS (13)
  1. REMICADE [Suspect]
     Indication: RHEUMATOID ARTHRITIS
     Route: 042
     Dates: start: 20130718
  2. REMICADE [Suspect]
     Indication: RHEUMATOID ARTHRITIS
     Route: 042
     Dates: start: 20110323
  3. PERCOCET [Concomitant]
     Dosage: AS NEEDED
     Route: 048
  4. HALCION [Concomitant]
     Dosage: FREQUENCY: 1-2 TABTETS HOUR OF SLEEP (HS)
     Route: 048
  5. ROSUVASTATIN [Concomitant]
     Route: 048
  6. HCTZ [Concomitant]
     Route: 048
  7. TYLENOL 3 [Concomitant]
     Dosage: 1-2 TABLETS ONCE EVERY 4 HOUR AS NECESSARY
     Route: 048
  8. PREDNISONE [Concomitant]
     Route: 048
  9. RISEDRONATE [Concomitant]
     Route: 048
  10. PLAQUENIL [Concomitant]
     Route: 048
  11. METHOTREXATE [Concomitant]
     Route: 048
  12. VITAMIN D [Concomitant]
     Route: 048
  13. FOLIC ACID [Concomitant]
     Route: 048

REACTIONS (6)
  - Crohn^s disease [Recovered/Resolved]
  - Vomiting [Recovered/Resolved]
  - Infusion related reaction [Recovered/Resolved]
  - Nausea [Recovered/Resolved]
  - Pruritus generalised [Recovered/Resolved]
  - Ear pruritus [Recovered/Resolved]
